FAERS Safety Report 7309837-2 (Version None)
Quarter: 2011Q1

REPORT INFORMATION
  Report Type: 
  Country: None (occurrence: None)
  Receive Date: 20110224
  Receipt Date: 20110211
  Transmission Date: 20110831
  Serious: No
  Sender: FDA-Public Use
  Company Number: US-BIOGENIDEC-2011BI006204

PATIENT
  Age: 66 Year
  Sex: Female

DRUGS (1)
  1. TYSABRI [Suspect]
     Indication: MULTIPLE SCLEROSIS
     Route: 042
     Dates: start: 20080213

REACTIONS (6)
  - DEHYDRATION [None]
  - LETHARGY [None]
  - PYREXIA [None]
  - VIRAL INFECTION [None]
  - HYPERHIDROSIS [None]
  - NAUSEA [None]
